FAERS Safety Report 8436289-1 (Version None)
Quarter: 2012Q2

REPORT INFORMATION
  Report Type: 
  Country: None (occurrence: None)
  Receive Date: 20120614
  Receipt Date: 20120611
  Transmission Date: 20120825
  Serious: Yes (Hospitalization, Other)
  Sender: FDA-Public Use
  Company Number: US-AMGEN-USASP2012036380

PATIENT
  Age: 56 Year
  Sex: Female
  Weight: 104.31 kg

DRUGS (2)
  1. HUMIRA [Concomitant]
     Indication: RHEUMATOID ARTHRITIS
     Dosage: 40 MG, Q2WK
     Dates: start: 20110801
  2. ENBREL [Suspect]
     Indication: RHEUMATOID ARTHRITIS
     Dosage: UNK
     Dates: end: 20110801

REACTIONS (3)
  - DRUG INEFFECTIVE [None]
  - IMPAIRED HEALING [None]
  - FEMUR FRACTURE [None]
